FAERS Safety Report 13282411 (Version 2)
Quarter: 2017Q1

REPORT INFORMATION
  Report Type: Spontaneous
  Country: US (occurrence: US)
  Receive Date: 20170301
  Receipt Date: 20170302
  Transmission Date: 20170428
  Serious: No
  Sender: FDA-Public Use
  Company Number: US-BAYER-2017-039790

PATIENT
  Age: 27 Year
  Sex: Male
  Weight: 113 kg

DRUGS (4)
  1. ACETAMINOPHEN. [Concomitant]
     Active Substance: ACETAMINOPHEN
  2. ALEVE [Suspect]
     Active Substance: NAPROXEN SODIUM
     Indication: PAIN
     Dosage: 3 DF, UNDER 4 HOURS
     Route: 048
     Dates: start: 20170228, end: 20170228
  3. IBUPROFEN. [Concomitant]
     Active Substance: IBUPROFEN
     Indication: INGROWING NAIL
     Dosage: 2 DF, UNK
     Dates: start: 201702
  4. IBUPROFEN. [Concomitant]
     Active Substance: IBUPROFEN
     Indication: INGROWING NAIL
     Dosage: 1 DF, UNK
     Dates: start: 201702

REACTIONS (5)
  - Nervousness [Unknown]
  - Insomnia [Unknown]
  - Fatigue [Unknown]
  - Dyspnoea [Unknown]
  - Product use issue [Unknown]

NARRATIVE: CASE EVENT DATE: 20170228
